FAERS Safety Report 13153394 (Version 1)
Quarter: 2017Q1

REPORT INFORMATION
  Report Type: Spontaneous
  Country: US (occurrence: US)
  Receive Date: 20170125
  Receipt Date: 20170125
  Transmission Date: 20170428
  Serious: Yes (Other)
  Sender: FDA-Public Use
  Company Number: None

PATIENT
  Age: 62 Year
  Sex: Female
  Weight: 47.17 kg

DRUGS (1)
  1. DRAMAMINE ORIGINAL FORMULA [Suspect]
     Active Substance: DIMENHYDRINATE
     Indication: MOTION SICKNESS
     Dosage: 1/2 TABLET ONCE PO
     Route: 048
     Dates: start: 201603

REACTIONS (3)
  - Nausea [None]
  - Loss of consciousness [None]
  - Syncope [None]

NARRATIVE: CASE EVENT DATE: 20161229
